FAERS Safety Report 6588098-6 (Version None)
Quarter: 2010Q1

REPORT INFORMATION
  Report Type: 
  Country: None (occurrence: None)
  Receive Date: 20100218
  Receipt Date: 20100208
  Transmission Date: 20100710
  Serious: Yes (Other)
  Sender: FDA-Public Use
  Company Number: PHHY2010JP07670

PATIENT

DRUGS (1)
  1. SANDOSTATIN [Suspect]
     Route: 058

REACTIONS (1)
  - DELIRIUM [None]
